FAERS Safety Report 8090925-0 (Version None)
Quarter: 2012Q1

REPORT INFORMATION
  Report Type: 
  Country: None (occurrence: None)
  Receive Date: 20120128
  Receipt Date: 20110728
  Transmission Date: 20120608
  Serious: Yes (Hospitalization, Other)
  Sender: FDA-Public Use
  Company Number: US-ABBOTT-11P-163-0842805-00

PATIENT
  Sex: Female
  Weight: 56.296 kg

DRUGS (2)
  1. HUMIRA [Suspect]
     Indication: CROHN'S DISEASE
     Route: 058
     Dates: start: 20110501
  2. HUMIRA [Suspect]
     Indication: COLITIS

REACTIONS (3)
  - ABDOMINAL PAIN [None]
  - PYREXIA [None]
  - PANCREATITIS [None]
